FAERS Safety Report 9813512 (Version 1)
Quarter: 2014Q1

REPORT INFORMATION
  Report Type: Spontaneous
  Country: US (occurrence: None)
  Receive Date: 20140109
  Receipt Date: 20140109
  Transmission Date: 20141002
  Serious: Yes (Life-Threatening)
  Sender: FDA-Public Use
  Company Number: None

PATIENT
  Age: 61 Year
  Sex: Male
  Weight: 68 kg

DRUGS (1)
  1. PACLITAXEL [Suspect]
     Route: 042
     Dates: start: 20130802, end: 20130802

REACTIONS (1)
  - Anaphylactic reaction [None]
